FAERS Safety Report 18637693 (Version 1)
Quarter: 2020Q4

REPORT INFORMATION
  Report Type: Spontaneous
  Country: FR (occurrence: FR)
  Receive Date: 20201218
  Receipt Date: 20201218
  Transmission Date: 20210114
  Serious: Yes (Other)
  Sender: FDA-Public Use
  Company Number: FR-009507513-2012FRA005874

PATIENT
  Age: 49 Year
  Sex: Male

DRUGS (5)
  1. VIRAFERONPEG [Suspect]
     Active Substance: PEGINTERFERON ALFA-2B
     Dosage: UNK
     Dates: start: 20110321, end: 20110606
  2. COPEGUS [Concomitant]
     Active Substance: RIBAVIRIN
     Dosage: UNK
     Dates: start: 20140513, end: 20141028
  3. DACLATASVIR. [Concomitant]
     Active Substance: DACLATASVIR
     Dosage: UNK
     Dates: start: 20140513, end: 20141028
  4. REBETOL [Suspect]
     Active Substance: RIBAVIRIN
     Dosage: UNK
     Route: 048
     Dates: start: 20110321, end: 20110606
  5. SOFOSBUVIR [Concomitant]
     Active Substance: SOFOSBUVIR
     Dosage: UNK
     Dates: start: 20140513, end: 20141028

REACTIONS (1)
  - Small cell lung cancer [Recovering/Resolving]

NARRATIVE: CASE EVENT DATE: 20180502
